FAERS Safety Report 11246648 (Version 1)
Quarter: 2015Q3

REPORT INFORMATION
  Report Type: Spontaneous
  Country: JP (occurrence: JP)
  Receive Date: 20150708
  Receipt Date: 20150708
  Transmission Date: 20151125
  Serious: Yes (Other)
  Sender: FDA-Public Use
  Company Number: JP-WATSON-2015-14126

PATIENT
  Age: 63 Year
  Sex: Male

DRUGS (2)
  1. URSODEOXYCHOLIC ACID (UNKNOWN) [Suspect]
     Active Substance: URSODIOL
     Indication: CHOLELITHIASIS
     Dosage: 600 MG, DAILY
     Route: 065
  2. TEPRENONE [Interacting]
     Active Substance: TEPRENONE
     Indication: ANTACID THERAPY
     Dosage: 150 MG, DAILY
     Route: 065

REACTIONS (4)
  - Bile duct stone [Recovered/Resolved]
  - Drug interaction [Recovered/Resolved]
  - Cholelithiasis [Recovered/Resolved]
  - Cholangitis [Recovered/Resolved]
